FAERS Safety Report 9657171 (Version 1)
Quarter: 2013Q4

REPORT INFORMATION
  Report Type: Spontaneous
  Country: RU (occurrence: RU)
  Receive Date: 20131030
  Receipt Date: 20131030
  Transmission Date: 20140711
  Serious: Yes (Other)
  Sender: FDA-Public Use
  Company Number: RU-TEVA-440227ISR

PATIENT
  Age: 40 Year
  Sex: Female

DRUGS (1)
  1. BISOPROLOL [Suspect]
     Indication: VENTRICULAR ARRHYTHMIA
     Dosage: 10MG
     Route: 065

REACTIONS (4)
  - Ventricular arrhythmia [Recovered/Resolved]
  - Condition aggravated [Recovered/Resolved]
  - Ventricular tachycardia [Recovered/Resolved]
  - Live birth [Recovered/Resolved]
